FAERS Safety Report 8369482-7 (Version None)
Quarter: 2012Q2

REPORT INFORMATION
  Report Type: 
  Country: None (occurrence: None)
  Receive Date: 20120518
  Receipt Date: 20120511
  Transmission Date: 20120825
  Serious: Yes (Hospitalization)
  Sender: FDA-Public Use
  Company Number: JP-PFIZER INC-2012116016

PATIENT
  Age: 54 Year
  Sex: Male
  Weight: 101 kg

DRUGS (2)
  1. ZITHROMAX [Suspect]
     Dosage: UNK
     Dates: start: 20120510
  2. ZITHROMAX [Suspect]
     Dosage: UNK
     Route: 042
     Dates: start: 20120510, end: 20120510

REACTIONS (2)
  - FEELING ABNORMAL [None]
  - INAPPROPRIATE SCHEDULE OF DRUG ADMINISTRATION [None]
